FAERS Safety Report 7210464-6 (Version None)
Quarter: 2010Q4

REPORT INFORMATION
  Report Type: 
  Country: None (occurrence: None)
  Receive Date: 20101227
  Receipt Date: 20101213
  Transmission Date: 20110411
  Serious: Yes (Other)
  Sender: FDA-Public Use
  Company Number: 2010SP003558

PATIENT
  Age: 61 Year
  Sex: Female

DRUGS (3)
  1. ALVESCO [Suspect]
     Dosage: 400 MG;QD;INHALATION ; 40 MG;TID;INHALATION
     Route: 055
  2. CON MEDS [Concomitant]
  3. PREV MEDS [Concomitant]

REACTIONS (3)
  - DRUG HYPERSENSITIVITY [None]
  - INSOMNIA [None]
  - PNEUMONIA [None]
